FAERS Safety Report 8835665 (Version 2)
Quarter: 2012Q4

REPORT INFORMATION
  Report Type: 
  Country: BR (occurrence: BR)
  Receive Date: 20121011
  Receipt Date: 20121017
  Transmission Date: 20130627
  Serious: Yes (Other)
  Sender: FDA-Public Use
  Company Number: BR-PFIZER INC-2012250265

PATIENT
  Age: 65 Year
  Sex: Female
  Weight: 80 kg

DRUGS (5)
  1. TECTA [Suspect]
     Dosage: 40 mg, daily
     Route: 048
     Dates: start: 20120926, end: 20120927
  2. PANTOZOL [Concomitant]
     Indication: GASTRITIS
     Dosage: 20 mg, daily
     Route: 048
     Dates: start: 2006
  3. PANTOZOL [Concomitant]
     Indication: GASTROOESOPHAGEAL REFLUX DISEASE
  4. LOSARTAN POTASSIUM [Concomitant]
     Indication: HYPERTENSION
     Dosage: 50 mg, daily
     Route: 048
     Dates: start: 2007
  5. CRESTOR [Concomitant]
     Indication: HYPERCHOLESTEROLAEMIA
     Dosage: 5 mg, daily
     Route: 048
     Dates: start: 2011

REACTIONS (5)
  - Dyspnoea [Recovered/Resolved]
  - Head discomfort [Recovered/Resolved]
  - Blood pressure increased [Recovered/Resolved]
  - Somnolence [Unknown]
  - Malaise [Unknown]
